FAERS Safety Report 8377706-5 (Version None)
Quarter: 2012Q2

REPORT INFORMATION
  Report Type: 
  Country: None (occurrence: None)
  Receive Date: 20120522
  Receipt Date: 20120515
  Transmission Date: 20120825
  Serious: Yes (Hospitalization)
  Sender: FDA-Public Use
  Company Number: US-GLAXOSMITHKLINE-A0978091A

PATIENT
  Age: 66 Year
  Sex: Female
  Weight: 32 kg

DRUGS (18)
  1. MAGNESIUM HYDROXIDE TAB [Concomitant]
  2. BENADRYL [Concomitant]
  3. FLUCONAZOLE [Concomitant]
  4. DOXORUBICIN HCL [Suspect]
     Indication: STEM CELL TRANSPLANT
  5. NEURONTIN [Concomitant]
  6. BORTEZOMIB [Suspect]
     Indication: STEM CELL TRANSPLANT
  7. ONDANSETRON [Concomitant]
  8. MYLANTA [Concomitant]
  9. LORAZEPAM [Concomitant]
  10. MELPHALAN [Suspect]
     Indication: STEM CELL TRANSPLANT
     Route: 042
     Dates: start: 20120417
  11. LEVOFLOXACIN [Concomitant]
  12. ESOMEPRAZOLE MAGNESIUM [Concomitant]
  13. LISINOPRIL [Concomitant]
  14. DEXAMETHASONE [Suspect]
     Indication: STEM CELL TRANSPLANT
  15. VALACYCLOVIR HYDROCHLORIDE [Concomitant]
  16. ALUMINIUM HYDROXIDE GEL [Concomitant]
  17. OXYCODONE HCL [Concomitant]
  18. LENALIDOMIDE [Suspect]
     Indication: STEM CELL TRANSPLANT

REACTIONS (5)
  - ASTHENIA [None]
  - FATIGUE [None]
  - DIARRHOEA [None]
  - VOMITING [None]
  - NAUSEA [None]
